FAERS Safety Report 9173540 (Version 1)
Quarter: 2013Q1

REPORT INFORMATION
  Report Type: Spontaneous
  Country: GB (occurrence: GB)
  Receive Date: 20130320
  Receipt Date: 20130320
  Transmission Date: 20140127
  Serious: Yes (Other)
  Sender: FDA-Public Use
  Company Number: GB-MYLANLABS-2013S1005169

PATIENT
  Age: 61 Year
  Sex: Female

DRUGS (2)
  1. ALENDRONIC ACID [Suspect]
     Indication: OSTEOPOROSIS
     Route: 048
     Dates: start: 20130209, end: 20130210
  2. ADCAL D3 [Concomitant]
     Indication: PRODUCT USED FOR UNKNOWN INDICATION

REACTIONS (3)
  - Impaired driving ability [Recovered/Resolved]
  - Malaise [Recovered/Resolved]
  - Dizziness [Recovered/Resolved]
